FAERS Safety Report 5328766-7 (Version None)
Quarter: 2007Q2

REPORT INFORMATION
  Report Type: 
  Country: None (occurrence: None)
  Receive Date: 20070516
  Receipt Date: 20070516
  Transmission Date: 20071010
  Serious: No
  Sender: FDA-Public Use
  Company Number: None

PATIENT
  Age: 54 Year
  Sex: Female
  Weight: 63.5036 kg

DRUGS (2)
  1. LEVAQUIN [Suspect]
     Indication: SINUSITIS
     Dosage: 10 1XDAY
     Dates: start: 20070209, end: 20070215
  2. LEVAQUIN [Suspect]
     Indication: BRONCHITIS
     Dosage: 10 1XDAY
     Dates: start: 20070502, end: 20070508

REACTIONS (2)
  - ARTHRALGIA [None]
  - JOINT SWELLING [None]
